FAERS Safety Report 4480550-2 (Version None)
Quarter: 2004Q4

REPORT INFORMATION
  Report Type: 
  Country: None (occurrence: None)
  Receive Date: 20041019
  Receipt Date: 20040930
  Transmission Date: 20050328
  Serious: Yes (Other)
  Sender: FDA-Public Use
  Company Number: MEDI-0002281

PATIENT
  Sex: Male

DRUGS (1)
  1. ETHYOL [Suspect]
     Dosage: INTRAVENOUS
     Route: 042

REACTIONS (5)
  - CONJUNCTIVITIS [None]
  - FACE OEDEMA [None]
  - PRURITUS [None]
  - PYREXIA [None]
  - SKIN DISORDER [None]
